FAERS Safety Report 9002162 (Version 3)
Quarter: 2014Q1

REPORT INFORMATION
  Report Type: Spontaneous
  Country: PR (occurrence: US)
  Receive Date: 20130107
  Receipt Date: 20140217
  Transmission Date: 20141002
  Serious: Yes (Other)
  Sender: FDA-Public Use
  Company Number: PR-PFIZER INC-2013003703

PATIENT
  Age: 46 Year
  Sex: Female

DRUGS (2)
  1. PRISTIQ [Suspect]
     Dosage: 50 MG, 1X/DAY (ONE IN THE MORNING)
     Route: 048
     Dates: start: 20120510
  2. NEURONTIN [Suspect]
     Dosage: UNK

REACTIONS (1)
  - Blindness [Unknown]
